FAERS Safety Report 6104153-9 (Version None)
Quarter: 2009Q1

REPORT INFORMATION
  Report Type: 
  Country: None (occurrence: None)
  Receive Date: 20090305
  Receipt Date: 20090225
  Transmission Date: 20090719
  Serious: Yes (Life-Threatening)
  Sender: FDA-Public Use
  Company Number: DE-TEVA-186373ISR

PATIENT
  Age: 60 Year
  Sex: Male

DRUGS (3)
  1. CARBOPLATIN [Suspect]
     Route: 042
     Dates: start: 20081218
  2. ETOPOSIDE [Concomitant]
     Dates: start: 20081217, end: 20081219
  3. IFOSFAMIDE [Concomitant]
     Dates: start: 20081218

REACTIONS (3)
  - BLOOD CREATININE INCREASED [None]
  - BLOOD POTASSIUM DECREASED [None]
  - TETANY [None]
